FAERS Safety Report 13192761 (Version 1)
Quarter: 2017Q1

REPORT INFORMATION
  Report Type: Spontaneous
  Country: JP (occurrence: JP)
  Receive Date: 20170207
  Receipt Date: 20170207
  Transmission Date: 20170428
  Serious: Yes (Hospitalization, Other)
  Sender: FDA-Public Use
  Company Number: JP-PFIZER INC-2017006669

PATIENT
  Age: 52 Year
  Sex: Male
  Weight: 52 kg

DRUGS (6)
  1. ANAEMETRO 500MG [Suspect]
     Active Substance: METRONIDAZOLE
     Dosage: 500 MG, 4X/DAY
     Route: 041
     Dates: start: 20161202, end: 20161216
  2. SULBACILLIN [Concomitant]
     Active Substance: AMPICILLIN SODIUM\SULBACTAM SODIUM
     Dosage: UNK
     Route: 041
     Dates: start: 20161128, end: 20161213
  3. SULBACILLIN [Concomitant]
     Active Substance: AMPICILLIN SODIUM\SULBACTAM SODIUM
     Dosage: 3 G, UNK
     Route: 041
     Dates: start: 20161120, end: 20161120
  4. ANAEMETRO 500MG [Suspect]
     Active Substance: METRONIDAZOLE
     Indication: HEPATIC AMOEBIASIS
     Dosage: 500 MG, 4X/DAY
     Route: 041
     Dates: start: 20161120, end: 20161125
  5. FLAGYL [Suspect]
     Active Substance: METRONIDAZOLE\METRONIDAZOLE HYDROCHLORIDE
     Dosage: 500 MG, 3X/DAY
     Route: 048
     Dates: start: 20161126, end: 20161201
  6. FLAGYL [Suspect]
     Active Substance: METRONIDAZOLE\METRONIDAZOLE HYDROCHLORIDE
     Indication: HEPATIC AMOEBIASIS
     Dosage: 500 MG, 3X/DAY
     Route: 048
     Dates: start: 20161118, end: 20161119

REACTIONS (8)
  - Thrombosis [Unknown]
  - Hepatic vein thrombosis [None]
  - Renal infarct [Unknown]
  - Pulmonary embolism [None]
  - Toxic encephalopathy [Recovering/Resolving]
  - Gastric ulcer [Unknown]
  - Vena cava thrombosis [None]
  - Fistula [Unknown]

NARRATIVE: CASE EVENT DATE: 2016
